FAERS Safety Report 24979670 (Version 1)
Quarter: 2025Q1

REPORT INFORMATION
  Report Type: Report from Study
  Country: US (occurrence: US)
  Receive Date: 20250218
  Receipt Date: 20250218
  Transmission Date: 20250408
  Serious: Yes (Other)
  Sender: RANBAXY
  Company Number: US-SUN PHARMACEUTICAL INDUSTRIES LTD-2025R1-494434

PATIENT
  Age: 23 Year
  Sex: Male

DRUGS (4)
  1. CAFFEINE [Suspect]
     Active Substance: CAFFEINE
     Indication: Product used for unknown indication
     Route: 065
  2. ETIZOLAM [Suspect]
     Active Substance: ETIZOLAM
     Indication: Product used for unknown indication
     Route: 065
  3. XANAX [Suspect]
     Active Substance: ALPRAZOLAM
     Indication: Anxiety
     Route: 065
  4. VICKS NYQUIL [Suspect]
     Active Substance: ACETAMINOPHEN\DEXTROMETHORPHAN HYDROBROMIDE\DOXYLAMINE SUCCINATE
     Indication: Product used for unknown indication
     Route: 065

REACTIONS (9)
  - Loss of consciousness [Unknown]
  - Toxicity to various agents [Unknown]
  - Impaired driving ability [Unknown]
  - Sedation [Unknown]
  - Dysarthria [Unknown]
  - Coordination abnormal [Unknown]
  - Sluggishness [Unknown]
  - Balance disorder [Unknown]
  - Tremor [Unknown]
